FAERS Safety Report 25275117 (Version 2)
Quarter: 2025Q2

REPORT INFORMATION
  Report Type: Spontaneous
  Country: JP (occurrence: JP)
  Receive Date: 20250506
  Receipt Date: 20250527
  Transmission Date: 20250716
  Serious: Yes (Death, Hospitalization)
  Sender: EAGLE
  Company Number: JP-EAGLE PHARMACEUTICALS, INC.-JP-2025EAG000063

PATIENT
  Age: 66 Year
  Sex: Male
  Weight: 60 kg

DRUGS (2)
  1. BENDAMUSTINE HYDROCHLORIDE [Suspect]
     Active Substance: BENDAMUSTINE HYDROCHLORIDE
     Indication: Follicular lymphoma recurrent
     Route: 042
  2. OBINUTUZUMAB [Suspect]
     Active Substance: OBINUTUZUMAB
     Indication: Follicular lymphoma recurrent
     Route: 042

REACTIONS (1)
  - COVID-19 pneumonia [Fatal]
